FAERS Safety Report 24334882 (Version 2)
Quarter: 2024Q3

REPORT INFORMATION
  Report Type: Report from Study
  Country: DE (occurrence: DE)
  Receive Date: 20240918
  Receipt Date: 20240928
  Transmission Date: 20241016
  Serious: No
  Sender: ROCHE
  Company Number: DE-ML39632-2298282-0

PATIENT
  Age: 28 Year
  Sex: Female
  Weight: 100 kg

DRUGS (7)
  1. OCREVUS [Suspect]
     Active Substance: OCRELIZUMAB
     Indication: Multiple sclerosis
     Route: 042
     Dates: start: 20210105, end: 20210119
  2. OCREVUS [Suspect]
     Active Substance: OCRELIZUMAB
     Route: 042
     Dates: start: 20210720, end: 20230814
  3. OFATUMUMAB [Suspect]
     Active Substance: OFATUMUMAB
     Indication: Multiple sclerosis
     Route: 058
     Dates: start: 20240220
  4. ETHINYL ESTRADIOL\LEVONORGESTREL [Concomitant]
     Active Substance: ETHINYL ESTRADIOL\LEVONORGESTREL
     Route: 048
     Dates: start: 202011
  5. PFIZER-BIONTECH COVID-19 VACCINE [Concomitant]
     Active Substance: TOZINAMERAN
     Route: 030
     Dates: start: 202112, end: 202112
  6. DIMETHYL FUMARATE [Concomitant]
     Active Substance: DIMETHYL FUMARATE
     Dates: start: 2017, end: 202012
  7. GLATIRAMER ACETATE [Concomitant]
     Active Substance: GLATIRAMER ACETATE
     Dates: start: 2015, end: 2017

REACTIONS (2)
  - Influenza [Not Recovered/Not Resolved]
  - Bronchitis [Not Recovered/Not Resolved]

NARRATIVE: CASE EVENT DATE: 20240715
